FAERS Safety Report 24094794 (Version 2)
Quarter: 2024Q3

REPORT INFORMATION
  Report Type: Spontaneous
  Country: US (occurrence: US)
  Receive Date: 20240716
  Receipt Date: 20240716
  Transmission Date: 20241017
  Serious: Yes (Hospitalization)
  Sender: ROCHE
  Company Number: US-ROCHE-10000003548

PATIENT
  Sex: Female
  Weight: 45.36 kg

DRUGS (1)
  1. OCREVUS [Suspect]
     Active Substance: OCRELIZUMAB
     Indication: Multiple sclerosis
     Route: 065

REACTIONS (9)
  - Infection [Unknown]
  - Alopecia [Unknown]
  - Headache [Unknown]
  - Gait inability [Unknown]
  - Pneumonia [Unknown]
  - Pneumothorax [Unknown]
  - Speech disorder [Unknown]
  - Oral disorder [Unknown]
  - Tooth disorder [Unknown]
